FAERS Safety Report 6436655-X (Version None)
Quarter: 2009Q4

REPORT INFORMATION
  Report Type: 
  Country: None (occurrence: None)
  Receive Date: 20091111
  Receipt Date: 20091030
  Transmission Date: 20100525
  Serious: Yes (Death)
  Sender: FDA-Public Use
  Company Number: JP-PFIZER INC-2009283184

PATIENT
  Age: 41 Year
  Sex: Male
  Weight: 61.995 kg

DRUGS (13)
  1. ZOLOFT [Suspect]
     Indication: MAJOR DEPRESSION
     Dosage: 100 MG, 1X/DAY
     Dates: start: 20090629, end: 20090712
  2. ZOLOFT [Suspect]
     Dosage: 25 MG, 1X/DAY
     Route: 048
     Dates: start: 20090615, end: 20090621
  3. ZOLOFT [Suspect]
     Dosage: 50 MG, 1X/DAY
     Route: 048
     Dates: start: 20090622, end: 20090628
  4. DOMPERIDONE [Concomitant]
     Route: 048
  5. NITRAZEPAM [Concomitant]
     Route: 048
     Dates: start: 20090302
  6. FLUNITRAZEPAM [Concomitant]
     Route: 048
     Dates: start: 20090518
  7. MYSLEE [Concomitant]
     Route: 048
     Dates: start: 20090413
  8. EURODIN [Concomitant]
     Route: 048
     Dates: start: 20090511
  9. GLORIAMIN [Concomitant]
     Route: 048
     Dates: start: 20090601
  10. LEVOTOMIN [Concomitant]
     Route: 048
     Dates: start: 20090220
  11. FAMOTIDINE [Concomitant]
     Route: 048
     Dates: start: 20090706
  12. ISOMYTAL [Concomitant]
     Route: 048
     Dates: start: 20090713
  13. PAXIL [Concomitant]
     Route: 048
     Dates: start: 20090316, end: 20090628

REACTIONS (7)
  - ANXIETY [None]
  - COMPLETED SUICIDE [None]
  - INSOMNIA [None]
  - IRRITABILITY [None]
  - NAUSEA [None]
  - RESTLESSNESS [None]
  - WITHDRAWAL SYNDROME [None]
